FAERS Safety Report 25612144 (Version 2)
Quarter: 2025Q3

REPORT INFORMATION
  Report Type: Report from Study
  Country: CA (occurrence: CA)
  Receive Date: 20250728
  Receipt Date: 20250805
  Transmission Date: 20251020
  Serious: Yes (Other)
  Sender: ALNYLAM PHARMACEUTICALS
  Company Number: CA-ALNYLAM PHARMACEUTICALS, INC.-ALN-2025-004550

PATIENT

DRUGS (2)
  1. AMVUTTRA [Suspect]
     Active Substance: VUTRISIRAN
     Indication: Hereditary neuropathic amyloidosis
     Dosage: 25 MILLIGRAM (25 MILLIGRAM/0.5 MILLILITER), Q3M
     Route: 058
     Dates: start: 20250204, end: 20250204
  2. AMVUTTRA [Suspect]
     Active Substance: VUTRISIRAN
     Dosage: 25 MILLIGRAM (25 MILLIGRAM/0.5 MILLILITER), Q3M
     Route: 058
     Dates: start: 20250722, end: 20250722

REACTIONS (7)
  - Muscular weakness [Unknown]
  - Motor dysfunction [Unknown]
  - Fatigue [Recovering/Resolving]
  - Hypersomnia [Unknown]
  - Hypoaesthesia [Unknown]
  - Hand deformity [Unknown]
  - Mobility decreased [Unknown]

NARRATIVE: CASE EVENT DATE: 20250101
